FAERS Safety Report 4748877-4 (Version None)
Quarter: 2005Q3

REPORT INFORMATION
  Report Type: 
  Country: None (occurrence: None)
  Receive Date: 20050819
  Receipt Date: 20050818
  Transmission Date: 20060218
  Serious: Yes (Other)
  Sender: FDA-Public Use
  Company Number: DE-GLAXOSMITHKLINE-D0047325A

PATIENT

DRUGS (1)
  1. IMIGRAN [Suspect]
     Route: 065

REACTIONS (1)
  - RETINAL DETACHMENT [None]
